FAERS Safety Report 6443019-1 (Version None)
Quarter: 2009Q4

REPORT INFORMATION
  Report Type: 
  Country: None (occurrence: None)
  Receive Date: 20091117
  Receipt Date: 20091113
  Transmission Date: 20100525
  Serious: Yes (Death, Hospitalization, Other)
  Sender: FDA-Public Use
  Company Number: PHEH2007US16357

PATIENT
  Sex: Female
  Weight: 86 kg

DRUGS (8)
  1. EXJADE [Suspect]
     Indication: HAEMOCHROMATOSIS
     Dosage: 2000 MG, QD
     Route: 048
     Dates: start: 20070324
  2. ALBUTEROL [Concomitant]
     Dosage: 2 PUFFS EVERY TWO HOURS, PRN
  3. NITROSTAT [Concomitant]
     Indication: CHEST PAIN
     Dosage: 1 TABLETS UNDER THE TONGUE, PRN
     Route: 060
  4. LUMIGAN [Concomitant]
     Dosage: 1 GTT, QHS, OU
  5. ALPHAGAN [Concomitant]
     Dosage: 1 GTT, TID, OU
  6. CEPACOL                            /00283202/ [Concomitant]
     Indication: COUGH
     Dosage: APPLY TO THE MUCOUS MEMBRANE, PRN
  7. TYLENOL (CAPLET) [Concomitant]
     Indication: PAIN
     Dosage: 2 TABLETS, Q6HRS, PRN
  8. LORTAB [Concomitant]
     Indication: PAIN
     Dosage: TAKE 2 TABLETS, EVERY FOUR HOURS, PRN

REACTIONS (10)
  - ACUTE RESPIRATORY FAILURE [None]
  - ASTHENIA [None]
  - BRONCHITIS [None]
  - DIALYSIS [None]
  - DIZZINESS [None]
  - FATIGUE [None]
  - MALAISE [None]
  - RENAL FAILURE [None]
  - SEPSIS [None]
  - THROMBOCYTOPENIA [None]
